FAERS Safety Report 16833295 (Version 1)
Quarter: 2019Q4

REPORT INFORMATION
  Report Type: Spontaneous
  Country: US (occurrence: US)
  Receive Date: 20190920
  Receipt Date: 20190920
  Transmission Date: 20200122
  Serious: Yes (Hospitalization)
  Sender: FDA-Public Use
  Company Number: None

PATIENT
  Age: 64 Year
  Sex: Male

DRUGS (5)
  1. LASIX [Concomitant]
     Active Substance: FUROSEMIDE
  2. LISINOPRIL. [Concomitant]
     Active Substance: LISINOPRIL
  3. HUMULIN NOS [Concomitant]
     Active Substance: INSULIN HUMAN
  4. CELEBREX [Concomitant]
     Active Substance: CELECOXIB
  5. NUCALA [Suspect]
     Active Substance: MEPOLIZUMAB
     Indication: ASTHMA
     Dosage: ?          OTHER FREQUENCY:Q4WKS;?
     Dates: start: 20190730

REACTIONS (1)
  - Oedema [None]

NARRATIVE: CASE EVENT DATE: 20190913
